FAERS Safety Report 10214207 (Version 1)
Quarter: 2014Q2

REPORT INFORMATION
  Report Type: Report from Study
  Country: OM (occurrence: None)
  Receive Date: 20140530
  Receipt Date: 20140530
  Transmission Date: 20141212
  Serious: Yes (Other)
  Sender: FDA-Public Use
  Company Number: 2014MPI00602

PATIENT
  Age: 19 Year
  Sex: Female

DRUGS (4)
  1. BRENTUXIMAB VEDOTIN (BRENTUXIMAB VEDOTIN) INJECTION [Suspect]
     Indication: HODGKIN^S DISEASE
     Dosage: Q21D
     Route: 042
     Dates: start: 20120717
  2. MOXIFLOXACIN (MOXIFLOXACIN) [Concomitant]
  3. FLUCONAZOLE (FLUCONAZOLE) [Concomitant]
  4. RANITIDINE (RANITIDINE HYDROCHLORIDE) [Concomitant]

REACTIONS (3)
  - Diabetic ketoacidosis [None]
  - Hyperglycaemia [None]
  - Infusion related reaction [None]
